FAERS Safety Report 7592290-1 (Version None)
Quarter: 2011Q3

REPORT INFORMATION
  Report Type: 
  Country: None (occurrence: None)
  Receive Date: 20110705
  Receipt Date: 20110705
  Transmission Date: 20111222
  Serious: Yes (Death)
  Sender: FDA-Public Use
  Company Number: None

PATIENT
  Age: 31 Year
  Sex: Male
  Weight: 6.3504 kg

DRUGS (2)
  1. METRONIDAZOLE [Suspect]
     Indication: CLOSTRIDIAL INFECTION
     Dosage: ONE CAPSULE THREE TIMES A DAY PO
     Route: 048
     Dates: start: 20110318, end: 20110329
  2. METRONIDAZOLE [Suspect]
     Indication: GIARDIASIS
     Dosage: ONE CAPSULE THREE TIMES A DAY PO
     Route: 048
     Dates: start: 20110318, end: 20110329

REACTIONS (2)
  - CARDIOPULMONARY FAILURE [None]
  - UNEVALUABLE EVENT [None]
